FAERS Safety Report 21503560 (Version 3)
Quarter: 2022Q4

REPORT INFORMATION
  Report Type: Spontaneous
  Country: AT (occurrence: AT)
  Receive Date: 20221025
  Receipt Date: 20221222
  Transmission Date: 20230113
  Serious: Yes (Death, Other)
  Sender: FDA-Public Use
  Company Number: AT-NOVARTISPH-NVSC2022AT239098

PATIENT

DRUGS (3)
  1. MAYZENT [Suspect]
     Active Substance: SIPONIMOD
     Indication: Relapsing multiple sclerosis
     Dosage: UNK
     Route: 065
     Dates: start: 202105
  2. NATALIZUMAB [Suspect]
     Active Substance: NATALIZUMAB
     Indication: Relapsing multiple sclerosis
     Dosage: UNK
     Route: 065
     Dates: start: 2007
  3. NATALIZUMAB [Suspect]
     Active Substance: NATALIZUMAB
     Dosage: UNK
     Route: 065

REACTIONS (5)
  - Completed suicide [Fatal]
  - Multiple sclerosis [Not Recovered/Not Resolved]
  - Insomnia [Unknown]
  - Aphthous ulcer [Unknown]
  - Dizziness [Unknown]

NARRATIVE: CASE EVENT DATE: 20210801
